FAERS Safety Report 12934627 (Version 3)
Quarter: 2016Q4

REPORT INFORMATION
  Report Type: Report from Study
  Country: GB (occurrence: GB)
  Receive Date: 20161111
  Receipt Date: 20161216
  Transmission Date: 20170207
  Serious: Yes (Other)
  Sender: FDA-Public Use
  Company Number: GB-GILEAD-2016-0242737

PATIENT
  Age: 71 Year
  Sex: Male
  Weight: 67 kg

DRUGS (6)
  1. ETRAVIRINE [Concomitant]
     Active Substance: ETRAVIRINE
     Dosage: UNK
     Route: 065
     Dates: start: 2009
  2. EFAVIRENZ [Concomitant]
     Active Substance: EFAVIRENZ
     Dosage: UNK
     Dates: start: 2002, end: 2009
  3. EMTRICITABINE/TENOFOVIR DISOPROXIL FUMARATE [Suspect]
     Active Substance: EMTRICITABINE\TENOFOVIR DISOPROXIL FUMARATE
     Indication: PRODUCT USED FOR UNKNOWN INDICATION
     Dosage: 1 DF, UNK
     Route: 048
     Dates: start: 2002
  4. ATORVASTATIN [Concomitant]
     Active Substance: ATORVASTATIN
  5. ACICLOVIR [Concomitant]
     Active Substance: ACYCLOVIR
  6. 3TC [Concomitant]
     Active Substance: LAMIVUDINE
     Dosage: UNK
     Dates: start: 2002, end: 2006

REACTIONS (4)
  - Osteopenia [Not Recovered/Not Resolved]
  - Glomerular filtration rate decreased [Not Recovered/Not Resolved]
  - Bone disorder [Unknown]
  - Renal impairment [Unknown]

NARRATIVE: CASE EVENT DATE: 2007
